FAERS Safety Report 10993183 (Version 1)
Quarter: 2015Q2

REPORT INFORMATION
  Report Type: Not Available
  Country: US (occurrence: US)
  Receive Date: 20150407
  Receipt Date: 20150407
  Transmission Date: 20150821
  Serious: Yes (Other)
  Sender: FDA-Public Use
  Company Number: US-LUPIN PHARMACEUTICALS INC.-E2B_00003190

PATIENT
  Sex: Female

DRUGS (5)
  1. OXCARBAZEPINE. [Concomitant]
     Active Substance: OXCARBAZEPINE
     Indication: SEIZURE
  2. CLORAZEPATE [Concomitant]
     Active Substance: CLORAZEPATE DIPOTASSIUM
     Indication: SEIZURE
  3. FELBAMATE. [Concomitant]
     Active Substance: FELBAMATE
     Indication: SEIZURE
  4. LEVETIRACETAM TABLETS USP 500MG [Suspect]
     Active Substance: LEVETIRACETAM
     Indication: SEIZURE
     Dosage: 2000MG (750MG IN THE MORNING, 500MG IN THE EVENING, 750MG IN THE NIGHT)
     Dates: start: 201307
  5. BANZEL [Concomitant]
     Active Substance: RUFINAMIDE
     Indication: SEIZURE
     Dosage: 700MG (1.5 DOSAGE FOR IN THE MORNING, HALF DOSAGE FORM IN MID-DAY, 1.5 DOSAGE FOR IN THE NIGHT)

REACTIONS (3)
  - Drug level decreased [Unknown]
  - Seizure [Unknown]
  - Drug ineffective [Unknown]
